FAERS Safety Report 17574967 (Version 2)
Quarter: 2020Q1

REPORT INFORMATION
  Report Type: Spontaneous
  Country: FR (occurrence: FR)
  Receive Date: 20200324
  Receipt Date: 20200327
  Transmission Date: 20200409
  Serious: Yes (Death, Hospitalization)
  Sender: FDA-Public Use
  Company Number: FR-TEVA-2020-FR-1207697

PATIENT
  Age: 86 Year
  Sex: Male
  Weight: 90 kg

DRUGS (24)
  1. SALBUTAMOL [Concomitant]
     Active Substance: ALBUTEROL
     Route: 055
  2. INCRUSE ELLIPTA [Concomitant]
     Active Substance: UMECLIDINIUM BROMIDE
     Route: 055
  3. OXYNORMORO 5 MG, COMPRIME ORODISPERSIBLE [Concomitant]
     Active Substance: OXYCODONE HYDROCHLORIDE
     Route: 048
  4. CHLORURE DE POTASSIUM [Concomitant]
     Active Substance: POTASSIUM CHLORIDE
     Route: 042
  5. RELVAR ELLIPTA [Concomitant]
     Active Substance: FLUTICASONE FUROATE\VILANTEROL TRIFENATATE
     Route: 055
  6. LEVOTHYROXINE SODIQUE [Concomitant]
     Active Substance: LEVOTHYROXINE SODIUM
     Route: 048
  7. AMLODIPINE [Concomitant]
     Active Substance: AMLODIPINE BESYLATE
     Route: 048
  8. TAZOCILLINE 4 G/500 MG, POUDRE POUR SOLUTION POUR PERFUSION [Concomitant]
     Active Substance: PIPERACILLIN SODIUM\TAZOBACTAM SODIUM
     Dosage: 3 DOSAGE FORMS
     Route: 042
     Dates: start: 20200102, end: 20200103
  9. CORTANCYL 20 MG, COMPRIME SECABLE [Concomitant]
     Route: 048
  10. FUROSEMIDE. [Concomitant]
     Active Substance: FUROSEMIDE
     Route: 042
  11. COUMADINE 2 MG, COMPRIME SECABLE [Concomitant]
     Active Substance: WARFARIN SODIUM
     Route: 048
  12. VANCOMYCINE [Suspect]
     Active Substance: VANCOMYCIN
     Indication: STAPHYLOCOCCAL INFECTION
     Dosage: 2 GRAMS
     Route: 042
     Dates: start: 20200103, end: 20200105
  13. BISOPROLOL (FUMARATE ACIDE DE) [Concomitant]
     Active Substance: BISOPROLOL FUMARATE
     Route: 048
  14. NOVORAPID 100 U/ML, SOLUTION INJECTABLE EN FLACON [Concomitant]
  15. PANTOPRAZOLE [Concomitant]
     Active Substance: PANTOPRAZOLE
     Route: 048
  16. ARANESP 150 MICROGRAMMES, SOLUTION INJECTABLE EN SERINGUE PR?REMPLIE [Concomitant]
     Route: 058
  17. IMOVANE [Concomitant]
     Active Substance: ZOPICLONE
     Route: 048
  18. ALLOPURINOL. [Concomitant]
     Active Substance: ALLOPURINOL
     Route: 048
  19. AUGMENTIN [Concomitant]
     Active Substance: AMOXICILLIN\CLAVULANATE POTASSIUM
     Route: 048
  20. GENTAMICINE [Concomitant]
     Active Substance: GENTAMICIN
     Route: 042
     Dates: start: 20200102, end: 20200103
  21. OXYCODONE (CHLORHYDRATE D^) [Concomitant]
     Route: 048
  22. DOLIPRANE [Concomitant]
     Active Substance: ACETAMINOPHEN
     Route: 048
  23. ORBENINE [Concomitant]
     Active Substance: CLOXACILLIN SODIUM
     Route: 048
  24. DIGOXINE [Concomitant]
     Active Substance: DIGOXIN
     Route: 042

REACTIONS (1)
  - Acute kidney injury [Not Recovered/Not Resolved]

NARRATIVE: CASE EVENT DATE: 20200105
